FAERS Safety Report 6510890-4 (Version None)
Quarter: 2009Q4

REPORT INFORMATION
  Report Type: 
  Country: None (occurrence: None)
  Receive Date: 20091222
  Receipt Date: 20090115
  Transmission Date: 20100525
  Serious: No
  Sender: FDA-Public Use
  Company Number: US-ASTRAZENECA-2009UW01264

PATIENT
  Age: 57 Year
  Sex: Female
  Weight: 68 kg

DRUGS (3)
  1. CRESTOR [Suspect]
     Indication: BLOOD CHOLESTEROL INCREASED
     Route: 048
     Dates: start: 20080701
  2. DIAVAN [Concomitant]
  3. LEVOTHYROXINE SODIUM [Concomitant]

REACTIONS (6)
  - ARTHRALGIA [None]
  - FEELING COLD [None]
  - FEELING HOT [None]
  - MUSCLE DISORDER [None]
  - PAIN IN EXTREMITY [None]
  - URTICARIA [None]
